FAERS Safety Report 21911439 (Version 1)
Quarter: 2023Q1

REPORT INFORMATION
  Report Type: Spontaneous
  Country: US (occurrence: US)
  Receive Date: 20230125
  Receipt Date: 20230125
  Transmission Date: 20230418
  Serious: No
  Sender: FDA-Public Use
  Company Number: US-ALLERGAN-2218976US

PATIENT
  Age: 40 Year
  Sex: Female

DRUGS (9)
  1. BOTOX [Suspect]
     Active Substance: ONABOTULINUMTOXINA
     Indication: Migraine
     Dosage: UNK, SINGLE
     Dates: start: 202111, end: 202111
  2. BOTOX [Suspect]
     Active Substance: ONABOTULINUMTOXINA
     Dosage: UNK, SINGLE
     Dates: start: 20220510, end: 20220510
  3. TRINTELLIX [Concomitant]
     Active Substance: VORTIOXETINE HYDROBROMIDE
     Indication: Depression
     Dosage: 20 MG, QD
     Route: 048
     Dates: start: 201710
  4. LISINOPRIL AND HYDROCHLOROTHIAZIDE [Concomitant]
     Active Substance: HYDROCHLOROTHIAZIDE\LISINOPRIL
     Indication: Hypertension
     Dosage: 20/12.5MG, QD
     Route: 048
     Dates: start: 2020
  5. ALBUTEROL [Concomitant]
     Active Substance: ALBUTEROL
     Indication: Asthma
     Dosage: UNK, PRN
     Route: 055
     Dates: start: 2012
  6. BUSPAR [Concomitant]
     Active Substance: BUSPIRONE HYDROCHLORIDE
     Indication: Anxiety
     Dosage: 7.5 MG, TID
     Route: 048
     Dates: start: 201710
  7. ZOFRAN [Concomitant]
     Active Substance: ONDANSETRON HYDROCHLORIDE
     Indication: Nausea
     Dosage: 4 MG, PRN
     Route: 048
  8. REYVOW [Concomitant]
     Active Substance: LASMIDITAN
     Indication: Pain
     Dosage: 50 MG, PRN
     Route: 048
     Dates: start: 202109
  9. FLECAINIDE [Concomitant]
     Active Substance: FLECAINIDE
     Indication: Ventricular extrasystoles
     Dosage: 100 MG, BID
     Route: 048
     Dates: start: 202202

REACTIONS (7)
  - COVID-19 [Recovered/Resolved]
  - Swelling face [Not Recovered/Not Resolved]
  - Skin warm [Unknown]
  - Tremor [Unknown]
  - Hypersensitivity [Unknown]
  - Dizziness [Unknown]
  - Headache [Unknown]

NARRATIVE: CASE EVENT DATE: 20211201
